FAERS Safety Report 25684164 (Version 5)
Quarter: 2025Q4

REPORT INFORMATION
  Report Type: Spontaneous
  Country: CA (occurrence: CA)
  Receive Date: 20250815
  Receipt Date: 20251107
  Transmission Date: 20260118
  Serious: Yes (Other)
  Sender: CELLTRION
  Company Number: CA-CELLTRION INC.-2025CA027360

PATIENT

DRUGS (4)
  1. STEQEYMA [Suspect]
     Active Substance: USTEKINUMAB-STBA
     Indication: Colitis ulcerative
     Dosage: 90 MG Q8WEEKS
     Route: 058
     Dates: start: 20250507
  2. STEQEYMA [Suspect]
     Active Substance: USTEKINUMAB-STBA
     Dosage: 90 MG EVERY 4 WEEKS
     Route: 058
     Dates: start: 20250507
  3. STEQEYMA [Suspect]
     Active Substance: USTEKINUMAB-STBA
     Dosage: 90 MG
     Route: 058
     Dates: start: 20250926
  4. STEQEYMA [Suspect]
     Active Substance: USTEKINUMAB-STBA
     Dosage: 520 MG THEN 90 MG
     Route: 058
     Dates: start: 20250507

REACTIONS (2)
  - Colitis ulcerative [Not Recovered/Not Resolved]
  - Intentional product use issue [Unknown]

NARRATIVE: CASE EVENT DATE: 20250801
